FAERS Safety Report 14525210 (Version 2)
Quarter: 2018Q1

REPORT INFORMATION
  Report Type: Spontaneous
  Country: CA (occurrence: CA)
  Receive Date: 20180213
  Receipt Date: 20180326
  Transmission Date: 20180509
  Serious: Yes (Other)
  Sender: FDA-Public Use
  Company Number: CA-TEVA-2018-CA-857087

PATIENT
  Age: 62 Year

DRUGS (1)
  1. FENTANYL. [Suspect]
     Active Substance: FENTANYL
     Indication: PRODUCT USED FOR UNKNOWN INDICATION
     Dosage: STRENGTH 100 MCG PATCH; CHANGED EVERY 2 (NOT 3) DAYS FOR 15 YEARS TO-DATE
     Route: 062

REACTIONS (11)
  - Paraesthesia [Unknown]
  - Hypoaesthesia [Unknown]
  - Vision blurred [Unknown]
  - Abdominal pain [Unknown]
  - Overdose [Unknown]
  - Feeling cold [Recovered/Resolved]
  - Feeling hot [Recovered/Resolved]
  - Oropharyngeal pain [Unknown]
  - Pallor [Unknown]
  - Miosis [Unknown]
  - Toxicity to various agents [Unknown]

NARRATIVE: CASE EVENT DATE: 20180202
